FAERS Safety Report 11615013 (Version 1)
Quarter: 2015Q4

REPORT INFORMATION
  Report Type: Spontaneous
  Country: US (occurrence: None)
  Receive Date: 20151008
  Receipt Date: 20151008
  Transmission Date: 20160304
  Serious: Yes (Death, Hospitalization)
  Sender: FDA-Public Use
  Company Number: None

PATIENT
  Age: 84 Year
  Sex: Male
  Weight: 57.15 kg

DRUGS (12)
  1. VITAMIN B12 [Concomitant]
     Active Substance: CYANOCOBALAMIN
  2. TYLENOL [Concomitant]
     Active Substance: ACETAMINOPHEN
  3. MEMATINE HYDROCHLORIDE [Concomitant]
     Active Substance: MEMANTINE HYDROCHLORIDE
  4. ASA [Concomitant]
     Active Substance: ASPIRIN
  5. NEXIUM [Concomitant]
     Active Substance: ESOMEPRAZOLE MAGNESIUM
  6. VITAMIN D2 [Concomitant]
     Active Substance: ERGOCALCIFEROL
  7. DULCOLAX NOS [Concomitant]
     Active Substance: BISACODYL OR DOCUSATE SODIUM
  8. CALCIUM/VITAMIN D2 [Concomitant]
  9. GUAIFENESIN/CODEINE [Concomitant]
     Active Substance: CODEINE PHOSPHATE\GUAIFENESIN
  10. ZOCOR [Concomitant]
     Active Substance: SIMVASTATIN
  11. PIRFENIDONE [Suspect]
     Active Substance: PIRFENIDONE
     Indication: IDIOPATHIC PULMONARY FIBROSIS
     Dosage: 2 TABLETS TID ORAL
     Route: 048
     Dates: start: 20150915, end: 20151003
  12. COLACE [Concomitant]
     Active Substance: DOCUSATE SODIUM

REACTIONS (2)
  - Respiratory failure [None]
  - Idiopathic pulmonary fibrosis [None]

NARRATIVE: CASE EVENT DATE: 20151003
